FAERS Safety Report 23758179 (Version 1)
Quarter: 2024Q2

REPORT INFORMATION
  Report Type: Spontaneous
  Country: US (occurrence: US)
  Receive Date: 20240418
  Receipt Date: 20240418
  Transmission Date: 20240716
  Serious: No
  Sender: FDA-Public Use
  Company Number: US-MYLANLABS-2024M1032114

PATIENT

DRUGS (3)
  1. NEURONTIN [Suspect]
     Active Substance: GABAPENTIN
     Indication: Lumbar radiculopathy
     Dosage: 600 MILLIGRAM, QD (TAKE ONE TAB BY MOUTH DAILY FOR 3 MONTH SUPPLY)
     Route: 048
  2. NEURONTIN [Suspect]
     Active Substance: GABAPENTIN
     Indication: Neuralgia
  3. NEURONTIN [Suspect]
     Active Substance: GABAPENTIN
     Indication: Pain

REACTIONS (1)
  - Off label use [Unknown]
